FAERS Safety Report 9339460 (Version 3)
Quarter: 2013Q4

REPORT INFORMATION
  Report Type: Spontaneous
  Country: US (occurrence: US)
  Receive Date: 20130610
  Receipt Date: 20131015
  Transmission Date: 20140711
  Serious: No
  Sender: FDA-Public Use
  Company Number: US-009507513-1306USA004052

PATIENT
  Sex: Female
  Weight: 68.27 kg

DRUGS (10)
  1. PEG-INTRON [Suspect]
     Indication: CHRONIC HEPATITIS C
     Dosage: 120 MICROGRAM / 0.5 ML REDIPEN
     Route: 058
     Dates: start: 20130523
  2. PEGASYS [Suspect]
     Indication: CHRONIC HEPATITIS C
     Dosage: UNK
     Dates: start: 2013
  3. RIBAPAK PAK [Suspect]
     Indication: CHRONIC HEPATITIS C
     Dosage: 1000 / DAY
     Dates: start: 20130523
  4. NEUPOGEN [Concomitant]
     Dosage: 300/0.5
  5. PROCRIT [Concomitant]
     Dosage: 4000/ML
  6. VITAMINS (UNSPECIFIED) [Concomitant]
     Route: 048
  7. CITALOPRAM [Concomitant]
     Route: 048
  8. OMEPRAZOLE [Concomitant]
     Route: 048
  9. TRUVADA [Concomitant]
     Route: 048
  10. LACTULOSE [Concomitant]
     Dosage: 20 GM/30

REACTIONS (9)
  - Injection site reaction [Unknown]
  - White blood cell count decreased [Unknown]
  - Leukopenia [Unknown]
  - Anaemia [Unknown]
  - White blood cell count decreased [Unknown]
  - Ammonia increased [Unknown]
  - Confusional state [Unknown]
  - Rash [Unknown]
  - Alopecia [Unknown]
